FAERS Safety Report 9182181 (Version 1)
Quarter: 2013Q1

REPORT INFORMATION
  Report Type: Spontaneous
  Country: US (occurrence: None)
  Receive Date: 20120622
  Receipt Date: 20120622
  Transmission Date: 20140127
  Serious: Yes (Hospitalization)
  Sender: FDA-Public Use
  Company Number: QSC-2012-0028

PATIENT
  Age: 10 Month
  Sex: Female
  Weight: 6.8 kg

DRUGS (1)
  1. H.P. ACTHAR GEL (ADRENOCORTICOTROPIC HORMONE) GEL FOR INJECTION, 80U/ML [Suspect]
     Route: 030
     Dates: start: 20120312, end: 20120326

REACTIONS (7)
  - Diarrhoea [None]
  - Flatulence [None]
  - Vomiting [None]
  - Convulsion [None]
  - Cushingoid [None]
  - Oral candidiasis [None]
  - Retching [None]
